FAERS Safety Report 4645051-7 (Version None)
Quarter: 2005Q2

REPORT INFORMATION
  Report Type: 
  Country: None (occurrence: None)
  Receive Date: 20050422
  Receipt Date: 20050412
  Transmission Date: 20051028
  Serious: Yes (Death)
  Sender: FDA-Public Use
  Company Number: 2005049775

PATIENT
  Age: 76 Year
  Sex: Male

DRUGS (3)
  1. TIKOSYN [Suspect]
     Indication: ILL-DEFINED DISORDER
     Dosage: 500 MCG (250 MCG, TWICE DAILY)
     Dates: start: 20030801
  2. CAPECITABINE (CAPECITABINE) [Concomitant]
  3. WARFARIN SODIUM [Concomitant]

REACTIONS (1)
  - DEATH [None]
